FAERS Safety Report 8330052-8 (Version None)
Quarter: 2012Q2

REPORT INFORMATION
  Report Type: 
  Country: None (occurrence: None)
  Receive Date: 20120502
  Receipt Date: 20120425
  Transmission Date: 20120825
  Serious: Yes (Other)
  Sender: FDA-Public Use
  Company Number: GB-ABBOTT-12P-167-0915635-00

PATIENT
  Weight: 62 kg

DRUGS (6)
  1. PREDNISOLONE [Concomitant]
     Indication: RHEUMATOID ARTHRITIS
     Route: 048
  2. SULFASALAZINE [Concomitant]
     Indication: RHEUMATOID ARTHRITIS
     Route: 048
  3. ALENDRONIC ACID [Concomitant]
     Indication: PROPHYLAXIS
  4. HUMIRA [Suspect]
     Indication: RHEUMATOID ARTHRITIS
     Route: 058
     Dates: start: 20080212, end: 20120313
  5. METHOTREXATE [Concomitant]
     Indication: RHEUMATOID ARTHRITIS
     Dosage: WEEKLY
     Route: 048
     Dates: start: 20060501
  6. ALENDRONIC ACID [Concomitant]
     Indication: BONE DISORDER
     Dosage: WEEKLY UNITS UNSPECIFIED
     Route: 048

REACTIONS (4)
  - BASAL CELL CARCINOMA [None]
  - SQUAMOUS CELL CARCINOMA [None]
  - SKIN LESION [None]
  - BOWEN'S DISEASE [None]
